FAERS Safety Report 13356161 (Version 1)
Quarter: 2017Q1

REPORT INFORMATION
  Report Type: Spontaneous
  Country: IT (occurrence: IT)
  Receive Date: 20170321
  Receipt Date: 20170321
  Transmission Date: 20170429
  Serious: Yes (Other)
  Sender: FDA-Public Use
  Company Number: IT-MYLANLABS-2017M1016894

PATIENT

DRUGS (1)
  1. LEVETIRACETAM MYLAN [Suspect]
     Active Substance: LEVETIRACETAM
     Indication: PRODUCT USED FOR UNKNOWN INDICATION
     Dosage: UNK
     Dates: start: 201307

REACTIONS (4)
  - Exposure during pregnancy [Recovered/Resolved]
  - Off label use [Unknown]
  - Prescribed overdose [Unknown]
  - Seizure [Unknown]
